FAERS Safety Report 7528557-2 (Version None)
Quarter: 2011Q2

REPORT INFORMATION
  Report Type: 
  Country: None (occurrence: None)
  Receive Date: 20110531
  Receipt Date: 20110516
  Transmission Date: 20111010
  Serious: Yes (Hospitalization, Other)
  Sender: FDA-Public Use
  Company Number: 2011MA005977

PATIENT
  Age: 59 Year
  Sex: Female

DRUGS (7)
  1. AMOXICILLIN [Concomitant]
  2. DESLORATADINE [Concomitant]
  3. SIMVASTATIN [Concomitant]
  4. HYDROCHLOROTHIAZIDE [Suspect]
     Dosage: 12.5 MG;OD
  5. NAPROXEN [Concomitant]
  6. LOSARTAN POTASSIUM [Concomitant]
  7. CLAVULANATE POTASSIUM [Concomitant]

REACTIONS (21)
  - INCONTINENCE [None]
  - SINUS CONGESTION [None]
  - CEREBELLAR SYNDROME [None]
  - PNEUMONIA ASPIRATION [None]
  - HYPONATRAEMIA [None]
  - ASTHENIA [None]
  - COUGH [None]
  - DECREASED APPETITE [None]
  - FATIGUE [None]
  - UNRESPONSIVE TO STIMULI [None]
  - OSMOTIC DEMYELINATION SYNDROME [None]
  - DYSARTHRIA [None]
  - BALANCE DISORDER [None]
  - LOCKED-IN SYNDROME [None]
  - HYPOVOLAEMIA [None]
  - MUCOUS MEMBRANE DISORDER [None]
  - MUSCULAR WEAKNESS [None]
  - MUSCLE SPASTICITY [None]
  - HYPOKALAEMIA [None]
  - TREMOR [None]
  - STAPHYLOCOCCAL SEPSIS [None]
